FAERS Safety Report 16898885 (Version 1)
Quarter: 2019Q4

REPORT INFORMATION
  Report Type: Report from Study
  Country: RO (occurrence: RO)
  Receive Date: 20191009
  Receipt Date: 20191009
  Transmission Date: 20200122
  Serious: Yes (Hospitalization)
  Sender: FDA-Public Use
  Company Number: RO-ROCHE-2127450

PATIENT
  Sex: Female
  Weight: 72 kg

DRUGS (5)
  1. MEDROL [Concomitant]
     Active Substance: METHYLPREDNISOLONE
  2. LEFLUNOMIDE. [Concomitant]
     Active Substance: LEFLUNOMIDE
     Route: 048
  3. HUMIRA [Concomitant]
     Active Substance: ADALIMUMAB
  4. ROACTEMRA [Suspect]
     Active Substance: TOCILIZUMAB
     Indication: RHEUMATOID ARTHRITIS
     Route: 058
     Dates: start: 201802
  5. METHOTREXATE. [Concomitant]
     Active Substance: METHOTREXATE
     Route: 065
     Dates: start: 201905

REACTIONS (12)
  - Meniscus injury [Not Recovered/Not Resolved]
  - Nasopharyngitis [Not Recovered/Not Resolved]
  - Oral candidiasis [Not Recovered/Not Resolved]
  - Poor peripheral circulation [Unknown]
  - Infection [Recovered/Resolved]
  - Arthropathy [Not Recovered/Not Resolved]
  - Drug intolerance [Unknown]
  - Peripheral swelling [Unknown]
  - Nervousness [Unknown]
  - Rhinitis [Not Recovered/Not Resolved]
  - Nasal candidiasis [Not Recovered/Not Resolved]
  - Malaise [Not Recovered/Not Resolved]
